FAERS Safety Report 17907603 (Version 1)
Quarter: 2020Q2

REPORT INFORMATION
  Report Type: Spontaneous
  Country: CA (occurrence: CA)
  Receive Date: 20200617
  Receipt Date: 20200617
  Transmission Date: 20200714
  Serious: Yes (Life-Threatening, Other)
  Sender: FDA-Public Use
  Company Number: CA-PFIZER INC-2020232893

PATIENT
  Age: 8 Year
  Sex: Female
  Weight: 24 kg

DRUGS (19)
  1. HYDROCORTISONE. [Concomitant]
     Active Substance: HYDROCORTISONE
  2. L-ASPARAGINASE [Suspect]
     Active Substance: ASPARAGINASE
     Indication: ACUTE LYMPHOCYTIC LEUKAEMIA
     Dosage: 2350 IU
     Route: 042
  3. DIMENHYDRINATE. [Concomitant]
     Active Substance: DIMENHYDRINATE
  4. DIPHENHYDRAMINE. [Concomitant]
     Active Substance: DIPHENHYDRAMINE
     Dosage: UNK
  5. FUROSEMIDE. [Concomitant]
     Active Substance: FUROSEMIDE
  6. CHLORHEXIDINE [Concomitant]
     Active Substance: CHLORHEXIDINE
  7. SULFAMETHOXAZOLE AND TRIMETHOPRIM [Concomitant]
     Active Substance: SULFAMETHOXAZOLE\TRIMETHOPRIM
  8. METHOTREXATE SODIUM. [Suspect]
     Active Substance: METHOTREXATE SODIUM
     Indication: ACUTE LYMPHOCYTIC LEUKAEMIA
     Dosage: 12 MG
     Route: 037
  9. HEPARIN CALCIUM [Concomitant]
     Active Substance: HEPARIN CALCIUM
  10. MITOXANTRONE HCL [Suspect]
     Active Substance: MITOXANTRONE HYDROCHLORIDE
     Indication: ACUTE LYMPHOCYTIC LEUKAEMIA
     Dosage: 10 MG
     Route: 042
  11. VINCRISTINE SULFATE. [Suspect]
     Active Substance: VINCRISTINE SULFATE
     Indication: ACUTE LYMPHOCYTIC LEUKAEMIA
     Dosage: 1.4 MG
     Route: 042
  12. ACETAMINOPHEN. [Concomitant]
     Active Substance: ACETAMINOPHEN
  13. RANITIDINE. [Concomitant]
     Active Substance: RANITIDINE
  14. DEXAMETHASONE. [Concomitant]
     Active Substance: DEXAMETHASONE
  15. MYCAMINE [Concomitant]
     Active Substance: MICAFUNGIN SODIUM
  16. EPINEPHRINE. [Concomitant]
     Active Substance: EPINEPHRINE
  17. LEVOFLOXACIN. [Concomitant]
     Active Substance: LEVOFLOXACIN
  18. ONDANSETRON [Concomitant]
     Active Substance: ONDANSETRON
  19. POLYETHYLENE GLYCOL [Concomitant]
     Active Substance: POLYETHYLENE GLYCOLS

REACTIONS (4)
  - Product use issue [Unknown]
  - Product use in unapproved indication [Unknown]
  - Aplastic anaemia [Unknown]
  - Off label use [Unknown]
